FAERS Safety Report 16263737 (Version 2)
Quarter: 2019Q2

REPORT INFORMATION
  Report Type: Report from Study
  Country: NL (occurrence: NL)
  Receive Date: 20190502
  Receipt Date: 20190506
  Transmission Date: 20190711
  Serious: Yes (Hospitalization)
  Sender: FDA-Public Use
  Company Number: NL-TOLMAR, INC.-2019NL004260

PATIENT

DRUGS (2)
  1. ELIGARD [Suspect]
     Active Substance: LEUPROLIDE ACETATE
     Dosage: 45 MG, 1 IN 26 WEEKS (SPECIFICATION NEEDLE: 19 G)
     Route: 058
     Dates: start: 20190430
  2. ELIGARD [Suspect]
     Active Substance: LEUPROLIDE ACETATE
     Indication: PROSTATE CANCER
     Dosage: 45 MG, 1 IN 26 WEEKS
     Route: 058
     Dates: start: 20181025

REACTIONS (1)
  - Transient ischaemic attack [Recovering/Resolving]

NARRATIVE: CASE EVENT DATE: 20190427
